FAERS Safety Report 5417039-X (Version None)
Quarter: 2007Q3

REPORT INFORMATION
  Report Type: 
  Country: None (occurrence: None)
  Receive Date: 20070816
  Receipt Date: 20070808
  Transmission Date: 20080115
  Serious: Yes (Hospitalization)
  Sender: FDA-Public Use
  Company Number: JP-ASTRAZENECA-2007AP04895

PATIENT
  Age: 72 Year
  Sex: Female
  Weight: 35.1 kg

DRUGS (5)
  1. IRESSA [Suspect]
     Indication: LUNG ADENOCARCINOMA
     Route: 048
     Dates: start: 20070612, end: 20070725
  2. DEPAKENE [Suspect]
     Indication: EPILEPSY
     Route: 048
     Dates: start: 20070612, end: 20070725
  3. AMLODIPINE [Concomitant]
     Indication: HYPERTENSION
     Route: 048
     Dates: end: 20070725
  4. CARBOPLATIN [Concomitant]
     Dosage: 4 COURSES
  5. PACLITAXEL [Concomitant]
     Dosage: 4 COURSES

REACTIONS (1)
  - MUCOUS MEMBRANE DISORDER [None]
